FAERS Safety Report 8806913 (Version 2)
Quarter: 2015Q2

REPORT INFORMATION
  Report Type: Report from Study
  Country: US (occurrence: US)
  Receive Date: 20120925
  Receipt Date: 20150401
  Transmission Date: 20150821
  Serious: Yes (Death, Hospitalization)
  Sender: FDA-Public Use
  Company Number: US-ROCHE-1126182

PATIENT
  Sex: Female
  Weight: 53.12 kg

DRUGS (10)
  1. AVASTIN [Suspect]
     Active Substance: BEVACIZUMAB
     Indication: GENITAL NEOPLASM MALIGNANT FEMALE
     Dosage: 7/10/08 AND 7/30/08
     Route: 042
     Dates: start: 20080710
  2. PEPCID [Concomitant]
     Active Substance: FAMOTIDINE
     Route: 042
  3. GEMCITABINE [Concomitant]
     Active Substance: GEMCITABINE\GEMCITABINE HYDROCHLORIDE
     Route: 065
  4. ATIVAN [Concomitant]
     Active Substance: LORAZEPAM
     Route: 042
  5. GEMCITABINE [Concomitant]
     Active Substance: GEMCITABINE\GEMCITABINE HYDROCHLORIDE
     Route: 042
  6. BENADRYL [Concomitant]
     Active Substance: DIPHENHYDRAMINE HYDROCHLORIDE
     Route: 042
  7. NORMAL SALINE [Concomitant]
     Active Substance: SODIUM CHLORIDE
     Route: 065
  8. TUSSIONEX PENNKINETIC [Suspect]
     Active Substance: CHLORPHENIRAMINE\HYDROCODONE
     Indication: PRODUCT USED FOR UNKNOWN INDICATION
     Route: 065
  9. ANZEMET [Concomitant]
     Active Substance: DOLASETRON MESYLATE
     Route: 042
  10. DECADRON [Concomitant]
     Active Substance: DEXAMETHASONE
     Route: 065

REACTIONS (11)
  - Tachycardia [Unknown]
  - Chest discomfort [Unknown]
  - Asthenia [Unknown]
  - Nausea [Unknown]
  - Cough [Unknown]
  - Death [Fatal]
  - Pleural effusion [Unknown]
  - Dyspnoea [Unknown]
  - Palpitations [Unknown]
  - Somnolence [Unknown]
  - Off label use [Unknown]
